FAERS Safety Report 7805316-4 (Version None)
Quarter: 2011Q4

REPORT INFORMATION
  Report Type: 
  Country: None (occurrence: None)
  Receive Date: 20111010
  Receipt Date: 20111005
  Transmission Date: 20120403
  Serious: Yes (Other)
  Sender: FDA-Public Use
  Company Number: DK-TEVA-303793ISR

PATIENT
  Sex: Female

DRUGS (3)
  1. METHOTREXATE [Suspect]
     Indication: RHEUMATOID ARTHRITIS
     Dosage: MABTHERA AND METHOTREXATE: STOP DATE/LATEST TREATMENT SERIES: 06MAY2011
     Route: 058
     Dates: start: 20090720
  2. MABTHERA [Suspect]
     Indication: RHEUMATOID ARTHRITIS
     Dosage: STOPDATO/SENESTE I BEHANDLINGSSERIEN: 06MAJ2011
     Dates: start: 20110411
  3. REMICADE [Suspect]
     Indication: RHEUMATOID ARTHRITIS
     Dosage: REMICADE: START DOSE 350 MG WEEK 0,2,6, +8
     Dates: start: 20100115, end: 20110110

REACTIONS (2)
  - OROPHARYNGEAL CANCER STAGE UNSPECIFIED [None]
  - METASTASES TO LYMPH NODES [None]
